FAERS Safety Report 8911238 (Version 1)
Quarter: 2012Q4

REPORT INFORMATION
  Report Type: 
  Country: US (occurrence: US)
  Receive Date: 20121116
  Receipt Date: 20121116
  Transmission Date: 20130627
  Serious: Yes (Death)
  Sender: FDA-Public Use
  Company Number: US-BRISTOL-MYERS SQUIBB COMPANY-17109612

PATIENT
  Age: 39 Year

DRUGS (1)
  1. SPRYCEL [Suspect]
     Dosage: last dose on 16Jul2012
     Dates: end: 20120616

REACTIONS (1)
  - Death [Fatal]
